FAERS Safety Report 5607789-4 (Version None)
Quarter: 2008Q1

REPORT INFORMATION
  Report Type: 
  Country: None (occurrence: None)
  Receive Date: 20080128
  Receipt Date: 20080128
  Transmission Date: 20080703
  Serious: Yes (Life-Threatening)
  Sender: FDA-Public Use
  Company Number: None

PATIENT
  Age: 15 Year
  Sex: Female
  Weight: 49.4421 kg

DRUGS (1)
  1. TRINESSA 6X28 WATSON LABS [Suspect]
     Indication: DYSMENORRHOEA
     Dosage: 1 PILL DAILY PO
     Route: 048
     Dates: start: 20071216, end: 20080124

REACTIONS (2)
  - DEPRESSION [None]
  - SUICIDAL IDEATION [None]
